FAERS Safety Report 25222923 (Version 1)
Quarter: 2025Q2

REPORT INFORMATION
  Report Type: Report from Study
  Country: US (occurrence: US)
  Receive Date: 20250422
  Receipt Date: 20250422
  Transmission Date: 20250717
  Serious: Yes (Hospitalization)
  Sender: COLLEGIUM PHARMACEUTICAL
  Company Number: US-SHIONOGUS-20250402015

PATIENT

DRUGS (2)
  1. SYMPROIC [Suspect]
     Active Substance: NALDEMEDINE TOSYLATE
     Indication: Product used for unknown indication
     Route: 065
  2. INGREZZA [Suspect]
     Active Substance: VALBENAZINE DITOSYLATE
     Indication: Tardive dyskinesia
     Route: 048
     Dates: start: 202410

REACTIONS (1)
  - Hospitalisation [Unknown]
